FAERS Safety Report 5811357-9 (Version None)
Quarter: 2008Q3

REPORT INFORMATION
  Report Type: 
  Country: None (occurrence: None)
  Receive Date: 20080716
  Receipt Date: 20080711
  Transmission Date: 20090109
  Serious: Yes (Other)
  Sender: FDA-Public Use
  Company Number: PR-ABBOTT-08P-131-0462256-00

PATIENT
  Age: 27 Year
  Sex: Female

DRUGS (4)
  1. NORVIR [Suspect]
     Indication: ANTIRETROVIRAL THERAPY
     Dosage: 200 MG, DAILY
     Route: 048
     Dates: start: 20080424
  2. LAMIVUDINE + ZIDOVUDINE [Suspect]
     Indication: ANTIRETROVIRAL THERAPY
     Dosage: 900 MG, DAILY
     Route: 048
  3. NELFINAVIR [Suspect]
     Indication: ANTIRETROVIRAL THERAPY
     Dosage: 2500 MG, DAILY
     Route: 048
     Dates: end: 20080424
  4. FOSAMPRENAVIR CALCIUM [Suspect]
     Indication: ANTIRETROVIRAL THERAPY
     Dosage: 1400 MG, DAILY
     Route: 048
     Dates: start: 20080424

REACTIONS (4)
  - ABORTION SPONTANEOUS [None]
  - DRUG EXPOSURE DURING PREGNANCY [None]
  - PREGNANCY [None]
  - PREMATURE SEPARATION OF PLACENTA [None]
